FAERS Safety Report 6567675-2 (Version None)
Quarter: 2010Q1

REPORT INFORMATION
  Report Type: 
  Country: None (occurrence: None)
  Receive Date: 20100203
  Receipt Date: 20100126
  Transmission Date: 20100710
  Serious: Yes (Hospitalization)
  Sender: FDA-Public Use
  Company Number: US-BIOGENIDEC-2010BI003032

PATIENT
  Age: 62 Year
  Sex: Female
  Weight: 70 kg

DRUGS (5)
  1. TYSABRI [Suspect]
     Indication: MULTIPLE SCLEROSIS
     Route: 042
     Dates: start: 20070101, end: 20070601
  2. TYSABRI [Suspect]
     Route: 042
     Dates: start: 20070101, end: 20080722
  3. AVONEX [Concomitant]
     Indication: MULTIPLE SCLEROSIS
     Route: 030
     Dates: start: 19960101, end: 20030101
  4. AVONEX [Concomitant]
     Route: 030
     Dates: start: 20030101, end: 20070101
  5. AVONEX [Concomitant]
     Route: 030
     Dates: start: 20080101

REACTIONS (6)
  - ABASIA [None]
  - HAEMORRHAGE [None]
  - SALMONELLOSIS [None]
  - SEPSIS [None]
  - STAPHYLOCOCCAL INFECTION [None]
  - WEIGHT INCREASED [None]
